FAERS Safety Report 5016452-2 (Version None)
Quarter: 2006Q2

REPORT INFORMATION
  Report Type: 
  Country: None (occurrence: None)
  Receive Date: 20060531
  Receipt Date: 20060531
  Transmission Date: 20061013
  Serious: Yes (Other)
  Sender: FDA-Public Use
  Company Number: None

PATIENT
  Age: 62 Year
  Sex: Male
  Weight: 75.2971 kg

DRUGS (1)
  1. VANCOMYCIN [Suspect]
     Indication: STAPHYLOCOCCAL INFECTION
     Dosage: 1500 MG Q12 IV
     Route: 042
     Dates: start: 20060410, end: 20060414

REACTIONS (3)
  - EOSINOPHILIA [None]
  - RASH [None]
  - SWELLING FACE [None]
